FAERS Safety Report 8126108-5 (Version None)
Quarter: 2012Q1

REPORT INFORMATION
  Report Type: 
  Country: None (occurrence: None)
  Receive Date: 20120209
  Receipt Date: 20120202
  Transmission Date: 20120608
  Serious: Yes (Other)
  Sender: FDA-Public Use
  Company Number: PHHY2011US36504

PATIENT
  Sex: Female

DRUGS (2)
  1. GILENYA [Suspect]
     Indication: MULTIPLE SCLEROSIS
     Dosage: 0.5 MG, QD
     Route: 048
     Dates: start: 20110419
  2. AMPYRA [Concomitant]
     Dosage: 10 MG, Q12H

REACTIONS (6)
  - DEPRESSION [None]
  - BACK PAIN [None]
  - PAIN [None]
  - ARTHRALGIA [None]
  - FALL [None]
  - HEAD INJURY [None]
